FAERS Safety Report 10874234 (Version 2)
Quarter: 2015Q2

REPORT INFORMATION
  Report Type: Spontaneous
  Country: US (occurrence: None)
  Receive Date: 20150224
  Receipt Date: 20150601
  Transmission Date: 20150821
  Serious: Yes (Hospitalization, Other)
  Sender: FDA-Public Use
  Company Number: US-2015VAL000160

PATIENT
  Age: 60 Year
  Sex: Female

DRUGS (8)
  1. METOPROLOL TARTRATE (METOPROLOL TARTRATE) UNKNOWN [Suspect]
     Active Substance: METOPROLOL TARTRATE
     Indication: HYPERTENSION
  2. LISINOPRIL (LISINOPRIL) [Suspect]
     Active Substance: LISINOPRIL
     Indication: BLOOD PRESSURE MANAGEMENT
  3. DILTIAZEM [Concomitant]
     Active Substance: DILTIAZEM
  4. LABETALOL [Concomitant]
     Active Substance: LABETALOL\LABETALOL HYDROCHLORIDE
  5. CLONIDINE HYDROCHLORIDE (CLONIDINE HYDROCHLORIDE) TABLET [Suspect]
     Active Substance: CLONIDINE HYDROCHLORIDE
     Indication: HYPERTENSION
     Dosage: NOT THE PRESCRIBED DOSE
  6. BUPRENORPHINE W/NALOXONE (BUPRENORPHINE, NALOXONE) [Concomitant]
  7. HYDROCHOROTHIAZIDE (HYDROCHLOROTHIAZIDE) [Concomitant]
  8. AMITRIPTYLINE (AMITRIPTYLINE) [Suspect]
     Active Substance: AMITRIPTYLINE
     Indication: DEPRESSION
     Dosage: NOT THE PRESCRIBED DOSE

REACTIONS (12)
  - Cerebral atrophy [None]
  - Hypertensive crisis [None]
  - Acute kidney injury [None]
  - Encephalomalacia [None]
  - Drug dependence [None]
  - Cerebellar atrophy [None]
  - Mental status changes [None]
  - Head injury [None]
  - Drug abuse [None]
  - Loss of consciousness [None]
  - Lacunar infarction [None]
  - Hallucination [None]

NARRATIVE: CASE EVENT DATE: 201105
